FAERS Safety Report 12186546 (Version 1)
Quarter: 2016Q1

REPORT INFORMATION
  Report Type: Spontaneous
  Country: US (occurrence: US)
  Receive Date: 20160317
  Receipt Date: 20160317
  Transmission Date: 20160526
  Serious: Yes (Other)
  Sender: FDA-Public Use
  Company Number: US-DRREDDYS-USA/USA/15/0053802

PATIENT
  Age: 24 Year
  Sex: Male
  Weight: 84 kg

DRUGS (21)
  1. LAMOTRIGINE TABLETS [Interacting]
     Active Substance: LAMOTRIGINE
     Route: 065
  2. LEVETIRACETAM. [Concomitant]
     Active Substance: LEVETIRACETAM
     Indication: EPILEPSY
     Route: 065
  3. PHENYTOIN. [Interacting]
     Active Substance: PHENYTOIN
     Indication: EPILEPSY
     Route: 065
  4. PHENYTOIN. [Interacting]
     Active Substance: PHENYTOIN
     Route: 065
  5. LORAZEPAM. [Concomitant]
     Active Substance: LORAZEPAM
     Indication: PSYCHOTIC DISORDER
     Route: 048
  6. LAMOTRIGINE TABLETS [Suspect]
     Active Substance: LAMOTRIGINE
     Indication: EPILEPSY
     Route: 065
  7. LAMOTRIGINE TABLETS [Interacting]
     Active Substance: LAMOTRIGINE
     Route: 065
  8. TOPIRAMATE. [Concomitant]
     Active Substance: TOPIRAMATE
     Indication: EPILEPSY
     Route: 065
  9. PHENOBARBITAL. [Interacting]
     Active Substance: PHENOBARBITAL
     Route: 065
  10. PHENOBARBITAL. [Interacting]
     Active Substance: PHENOBARBITAL
     Route: 065
  11. PHENOBARBITAL. [Interacting]
     Active Substance: PHENOBARBITAL
     Route: 065
  12. QUETIAPINE [Concomitant]
     Active Substance: QUETIAPINE
     Indication: EPILEPSY
     Route: 065
  13. PHENOBARBITAL. [Interacting]
     Active Substance: PHENOBARBITAL
     Indication: EPILEPSY
     Route: 065
  14. LAMOTRIGINE TABLETS [Interacting]
     Active Substance: LAMOTRIGINE
     Route: 065
  15. LAMOTRIGINE TABLETS [Interacting]
     Active Substance: LAMOTRIGINE
     Route: 065
  16. LACOSAMIDE [Concomitant]
     Active Substance: LACOSAMIDE
     Indication: EPILEPSY
     Route: 065
  17. LAMOTRIGINE TABLETS [Interacting]
     Active Substance: LAMOTRIGINE
     Route: 065
  18. LACOSAMIDE [Concomitant]
     Active Substance: LACOSAMIDE
     Route: 065
  19. PHENYTOIN. [Interacting]
     Active Substance: PHENYTOIN
     Route: 065
  20. LORAZEPAM. [Concomitant]
     Active Substance: LORAZEPAM
     Indication: SEIZURE
     Route: 030
  21. LORAZEPAM. [Concomitant]
     Active Substance: LORAZEPAM
     Route: 042

REACTIONS (4)
  - Anticonvulsant drug level below therapeutic [Unknown]
  - Drug interaction [Unknown]
  - Drug dose omission [Unknown]
  - Prescribed overdose [Unknown]
